FAERS Safety Report 13739613 (Version 1)
Quarter: 2017Q3

REPORT INFORMATION
  Report Type: Spontaneous
  Country: FR (occurrence: FR)
  Receive Date: 20170711
  Receipt Date: 20170711
  Transmission Date: 20171127
  Serious: Yes (Other)
  Sender: FDA-Public Use
  Company Number: PHHY2009FR58329

PATIENT
  Age: 73 Year
  Sex: Female

DRUGS (2)
  1. IPRATROPIUM BROMIDE\FENOTEROL HYDROBROMIDE [Concomitant]
     Active Substance: FENOTEROL HYDROBROMIDE\IPRATROPIUM BROMIDE
  2. CARTEOLOL [Suspect]
     Active Substance: CARTEOLOL
     Indication: INTRAOCULAR PRESSURE INCREASED
     Dosage: UNK
     Route: 047

REACTIONS (4)
  - Dysphagia [Recovered/Resolved]
  - Choking [Unknown]
  - Progressive bulbar palsy [Unknown]
  - Areflexia [Unknown]

NARRATIVE: CASE EVENT DATE: 2005
